FAERS Safety Report 11283931 (Version 3)
Quarter: 2016Q4

REPORT INFORMATION
  Report Type: Report from Study
  Country: FR (occurrence: FR)
  Receive Date: 20150720
  Receipt Date: 20161010
  Transmission Date: 20170206
  Serious: Yes (Hospitalization)
  Sender: FDA-Public Use
  Company Number: FR-ROCHE-GNE286158

PATIENT
  Age: 4 Year
  Sex: Male
  Weight: 11.71 kg

DRUGS (6)
  1. SOMATROPIN [Suspect]
     Active Substance: SOMATROPIN
     Dosage: FORM STRENGTH: 10MG/2ML.
     Route: 058
     Dates: start: 200902
  2. SOMATROPIN [Suspect]
     Active Substance: SOMATROPIN
     Dosage: FORM STRENGTH: 10MG/2ML.
     Route: 058
     Dates: start: 200709
  3. SOMATROPIN [Suspect]
     Active Substance: SOMATROPIN
     Indication: GROWTH HORMONE DEFICIENCY
     Dosage: FORM STRENGTH: 10MG/2ML.
     Route: 058
     Dates: start: 20070402
  4. SOMATROPIN [Suspect]
     Active Substance: SOMATROPIN
     Indication: FAILURE TO THRIVE
     Dosage: FORM STRENGTH: 10MG/2ML.
     Route: 058
     Dates: start: 200805
  5. SOMATROPIN [Suspect]
     Active Substance: SOMATROPIN
     Dosage: FORM STRENGTH: 10MG/2ML.
     Route: 058
     Dates: start: 200802
  6. SOMATROPIN [Suspect]
     Active Substance: SOMATROPIN
     Dosage: FORM STRENGTH: 10MG/2ML.
     Route: 058
     Dates: start: 200902

REACTIONS (4)
  - Tonsillar hypertrophy [Recovered/Resolved]
  - Sleep apnoea syndrome [Recovered/Resolved]
  - Otitis media [Recovered/Resolved]
  - Conductive deafness [Recovered/Resolved]

NARRATIVE: CASE EVENT DATE: 20090107
